FAERS Safety Report 10837096 (Version 1)
Quarter: 2015Q1

REPORT INFORMATION
  Report Type: Spontaneous
  Country: US (occurrence: None)
  Receive Date: 20150218
  Receipt Date: 20150218
  Transmission Date: 20150721
  Serious: Yes (Other)
  Sender: FDA-Public Use
  Company Number: 201502017

PATIENT
  Age: 66 Year
  Sex: Male

DRUGS (1)
  1. TESTIM [Suspect]
     Active Substance: TESTOSTERONE
     Indication: BLOOD TESTOSTERONE DECREASED
     Route: 062

REACTIONS (5)
  - Emotional distress [None]
  - Myocardial infarction [None]
  - Pain [None]
  - Anxiety [None]
  - Impaired work ability [None]

NARRATIVE: CASE EVENT DATE: 20130221
